FAERS Safety Report 6540242-2 (Version None)
Quarter: 2010Q1

REPORT INFORMATION
  Report Type: 
  Country: None (occurrence: None)
  Receive Date: 20100115
  Receipt Date: 20100107
  Transmission Date: 20100710
  Serious: Yes (Hospitalization)
  Sender: FDA-Public Use
  Company Number: JP-ASTRAZENECA-2009SE33077

PATIENT
  Age: 977 Month
  Sex: Female
  Weight: 30 kg

DRUGS (13)
  1. OMEPRAL [Suspect]
     Indication: REFLUX OESOPHAGITIS
     Route: 048
     Dates: start: 20080201, end: 20080902
  2. FLUMETHOLON [Concomitant]
     Indication: CATARACT
     Route: 047
     Dates: start: 20080201
  3. CRAVIT [Concomitant]
     Indication: CATARACT
     Route: 047
     Dates: start: 20080201
  4. BRONUCK [Concomitant]
     Indication: CATARACT
     Route: 047
     Dates: start: 20080201
  5. LORAMET [Concomitant]
     Indication: INSOMNIA
     Route: 048
     Dates: start: 20080201, end: 20080401
  6. LOCHOL [Concomitant]
     Indication: HYPERLIPIDAEMIA
     Route: 048
     Dates: start: 20080201, end: 20080401
  7. AM [Concomitant]
     Indication: GASTRITIS
     Route: 048
     Dates: start: 20080201, end: 20080401
  8. GASMOTIN [Concomitant]
     Indication: GASTRITIS
     Route: 048
     Dates: start: 20080201, end: 20080401
  9. ENTERONON-R [Concomitant]
     Indication: DIARRHOEA
     Route: 048
     Dates: start: 20080201, end: 20080401
  10. ALBUMIN TANNATE [Concomitant]
     Indication: DIARRHOEA
     Route: 048
     Dates: start: 20080201, end: 20080401
  11. LENDORMIN D [Concomitant]
     Indication: INSOMNIA
     Route: 048
     Dates: start: 20080405
  12. FERO-GRADUMET [Concomitant]
     Indication: ANAEMIA
     Route: 048
     Dates: start: 20080501, end: 20080826
  13. ITRIZOLE [Concomitant]
     Indication: CANDIDIASIS
     Route: 048
     Dates: start: 20080522, end: 20080916

REACTIONS (1)
  - GASTROENTERITIS BACTERIAL [None]
